FAERS Safety Report 8765185 (Version 1)
Quarter: 2012Q4

REPORT INFORMATION
  Report Type: 
  Country: US (occurrence: US)
  Receive Date: 20120904
  Receipt Date: 20120904
  Transmission Date: 20130627
  Serious: No
  Sender: FDA-Public Use
  Company Number: US-PFIZER INC-2012215189

PATIENT
  Age: 42 Year
  Sex: Male
  Weight: 102 kg

DRUGS (7)
  1. PRISTIQ [Suspect]
     Indication: BIPOLAR DISORDER
     Dosage: 100 mg, 1x/day
     Route: 048
     Dates: start: 201202
  2. PRISTIQ [Suspect]
     Indication: DEPRESSION
  3. PRISTIQ [Suspect]
     Indication: ANXIETY
  4. AMLODIPINE [Concomitant]
     Indication: HYPERTENSION
     Dosage: 2.5 mg, 1x/day
  5. COUMADIN [Concomitant]
     Indication: ANTICOAGULANT THERAPY
     Dosage: 5 mg, 1x/day
  6. XANAX [Concomitant]
     Indication: ANXIETY
     Dosage: 2 mg, 3x/day
     Route: 048
  7. XANAX [Concomitant]
     Indication: PANIC ATTACK

REACTIONS (1)
  - Drug screen false positive [Unknown]
